FAERS Safety Report 10030699 (Version 2)
Quarter: 2014Q1

REPORT INFORMATION
  Report Type: Spontaneous
  Country: US (occurrence: US)
  Receive Date: 20140323
  Receipt Date: 20140323
  Transmission Date: 20141002
  Serious: No
  Sender: FDA-Public Use
  Company Number: US-ALLERGAN-1320272US

PATIENT
  Age: 48 Year
  Sex: Female

DRUGS (3)
  1. LATISSE 0.03% [Suspect]
     Indication: GROWTH OF EYELASHES
     Dosage: UNK
     Dates: start: 20131216
  2. SYNTHROID [Concomitant]
     Indication: HYPOTHYROIDISM
     Dosage: 75 ?G, QD
     Route: 048
     Dates: start: 2003
  3. OTC LUBRICATING EYEDROPS NOS [Concomitant]
     Indication: PRODUCT USED FOR UNKNOWN INDICATION
     Dosage: UNK

REACTIONS (4)
  - Skin discolouration [Unknown]
  - Ocular hyperaemia [Recovering/Resolving]
  - Eye pruritus [Recovering/Resolving]
  - Eye irritation [Recovering/Resolving]
